FAERS Safety Report 4401058-6 (Version None)
Quarter: 2004Q3

REPORT INFORMATION
  Report Type: 
  Country: None (occurrence: None)
  Receive Date: 20040907
  Receipt Date: 20031013
  Transmission Date: 20050211
  Serious: Yes (Hospitalization)
  Sender: FDA-Public Use
  Company Number: US-BRISTOL-MYERS SQUIBB COMPANY-12409215

PATIENT
  Age: 84 Year
  Sex: Female
  Weight: 66 kg

DRUGS (11)
  1. COUMADIN [Suspect]
     Indication: DEEP VEIN THROMBOSIS
     Dosage: DOSE: (4 TO 6-SEP-03) 5 MG/D, (7 TO 23-SEP) 2.5 MG/D; (? TO 8-OCT 5) MG/D; PRESENT DOSE 3 MG/D.
     Route: 048
     Dates: start: 20030904
  2. MULTI-VITAMIN [Concomitant]
  3. POTASSIUM [Concomitant]
  4. IRON [Concomitant]
  5. FUROSEMIDE [Concomitant]
  6. ASPIRIN [Concomitant]
  7. PLAVIX [Concomitant]
  8. PROTONIX [Concomitant]
  9. COZAAR [Concomitant]
  10. TOPROL-XL [Concomitant]
  11. LIPITOR [Concomitant]

REACTIONS (2)
  - ANAEMIA [None]
  - HAEMATOCHEZIA [None]
